FAERS Safety Report 6772399-2 (Version None)
Quarter: 2010Q2

REPORT INFORMATION
  Report Type: 
  Country: None (occurrence: None)
  Receive Date: 20100616
  Receipt Date: 20090604
  Transmission Date: 20101027
  Serious: No
  Sender: FDA-Public Use
  Company Number: US-ASTRAZENECA-2009UW14105

PATIENT
  Age: 2 Year
  Sex: Female

DRUGS (4)
  1. PULMICORT [Suspect]
     Indication: NASOPHARYNGITIS
     Route: 055
  2. PULMICORT [Suspect]
     Route: 055
  3. XOPENEX [Suspect]
     Indication: ASTHMA
     Dosage: 0.63 MG/3ML AS NEEDED
     Route: 055
     Dates: start: 20081201
  4. SINGULAIR [Concomitant]

REACTIONS (5)
  - COUGH [None]
  - DYSPNOEA [None]
  - MEDICATION ERROR [None]
  - RETCHING [None]
  - VOMITING [None]
